FAERS Safety Report 7610084-5 (Version None)
Quarter: 2011Q3

REPORT INFORMATION
  Report Type: 
  Country: None (occurrence: None)
  Receive Date: 20110715
  Receipt Date: 20110706
  Transmission Date: 20111222
  Serious: Yes (Hospitalization)
  Sender: FDA-Public Use
  Company Number: US-BIOGENIDEC-2010BI038683

PATIENT
  Age: 67 Year
  Sex: Female

DRUGS (2)
  1. AVONEX [Suspect]
     Route: 030
     Dates: start: 20090925, end: 20101001
  2. AVONEX [Suspect]
     Indication: MULTIPLE SCLEROSIS
     Route: 030
     Dates: start: 20060420, end: 20070805

REACTIONS (7)
  - PNEUMONIA [None]
  - GASTRITIS [None]
  - VOMITING [None]
  - MULTIPLE SCLEROSIS [None]
  - FOAMING AT MOUTH [None]
  - CARDIAC FAILURE CONGESTIVE [None]
  - DIARRHOEA [None]
